FAERS Safety Report 20849680 (Version 4)
Quarter: 2022Q4

REPORT INFORMATION
  Report Type: Report from Study
  Country: US (occurrence: US)
  Receive Date: 20220519
  Receipt Date: 20221006
  Transmission Date: 20230112
  Serious: Yes (Hospitalization, Other)
  Sender: FDA-Public Use
  Company Number: US-TAKEDA-2022TUS032352

PATIENT
  Age: 75 Year
  Sex: Female
  Weight: 75 kg

DRUGS (28)
  1. HUMAN IMMUNOGLOBULIN G [Suspect]
     Active Substance: HUMAN IMMUNOGLOBULIN G
     Indication: Immunodeficiency common variable
     Dosage: 30 GRAM, Q4WEEKS
     Route: 042
     Dates: start: 20180111
  2. HUMAN IMMUNOGLOBULIN G [Suspect]
     Active Substance: HUMAN IMMUNOGLOBULIN G
     Dosage: 30 GRAM, Q4WEEKS
     Route: 042
     Dates: start: 20180111
  3. VANCOMYCIN [Suspect]
     Active Substance: VANCOMYCIN
     Indication: Product used for unknown indication
     Dosage: UNK
     Route: 065
  4. ERTAPENEM [Concomitant]
     Active Substance: ERTAPENEM
     Route: 065
  5. LISINOPRIL [Concomitant]
     Active Substance: LISINOPRIL
  6. PREDNISONE [Concomitant]
     Active Substance: PREDNISONE
     Route: 065
  7. SOTALOL [Concomitant]
     Active Substance: SOTALOL
     Route: 065
  8. SINGULAIR [Concomitant]
     Active Substance: MONTELUKAST SODIUM
  9. ACETAMINOPHEN [Concomitant]
     Active Substance: ACETAMINOPHEN
  10. DIPHENHYDRAMINE [Concomitant]
     Active Substance: DIPHENHYDRAMINE
  11. LIDOCAINE [Concomitant]
     Active Substance: LIDOCAINE
  12. EPINEPHRINE [Concomitant]
     Active Substance: EPINEPHRINE
  13. UNITHROID [Concomitant]
     Active Substance: LEVOTHYROXINE SODIUM
  14. WARFARIN SODIUM [Concomitant]
     Active Substance: WARFARIN SODIUM
  15. VITAMIN D3 [Concomitant]
     Active Substance: CHOLECALCIFEROL
  16. MINERALS\VITAMINS [Concomitant]
     Active Substance: MINERALS\VITAMINS
  17. Ester C [Concomitant]
  18. CVS COENZYME Q 10 [Concomitant]
  19. CRESTOR [Concomitant]
     Active Substance: ROSUVASTATIN CALCIUM
  20. COUMADIN [Concomitant]
     Active Substance: WARFARIN SODIUM
  21. ALLOPURINOL [Concomitant]
     Active Substance: ALLOPURINOL
  22. SODIUM CHLORIDE [Concomitant]
     Active Substance: SODIUM CHLORIDE
  23. SYNTHROID [Concomitant]
     Active Substance: LEVOTHYROXINE SODIUM
  24. COREG [Concomitant]
     Active Substance: CARVEDILOL
  25. PLAVIX [Concomitant]
     Active Substance: CLOPIDOGREL BISULFATE
  26. MUCINEX [Concomitant]
     Active Substance: GUAIFENESIN
  27. VITAMIN B COMPLEX [Concomitant]
     Active Substance: CYANOCOBALAMIN\DEXPANTHENOL\NIACINAMIDE\PYRIDOXINE HYDROCHLORIDE\RIBOFLAVIN 5^-PHOSPHATE SODIUM\THIA
  28. TOPROL XL [Concomitant]
     Active Substance: METOPROLOL SUCCINATE
     Route: 065

REACTIONS (15)
  - Pyrexia [Unknown]
  - Syncope [Unknown]
  - Pneumonia [Unknown]
  - Fungaemia [Unknown]
  - Blood pressure decreased [Recovering/Resolving]
  - Dehydration [Recovering/Resolving]
  - Ventricular tachycardia [Unknown]
  - Cardiac pacemaker insertion [Unknown]
  - Spinal operation [Unknown]
  - Sinus congestion [Unknown]
  - Respiratory tract infection [Unknown]
  - Sinusitis [Unknown]
  - Back pain [Unknown]
  - Bacterial infection [Unknown]
  - Drug hypersensitivity [Unknown]

NARRATIVE: CASE EVENT DATE: 20210708
